FAERS Safety Report 7730909-2 (Version None)
Quarter: 2011Q3

REPORT INFORMATION
  Report Type: 
  Country: None (occurrence: None)
  Receive Date: 20110906
  Receipt Date: 20110830
  Transmission Date: 20111222
  Serious: Yes (Hospitalization)
  Sender: FDA-Public Use
  Company Number: JP-PFIZER INC-2011101496

PATIENT
  Age: 73 Year
  Sex: Male
  Weight: 55 kg

DRUGS (12)
  1. TEMSIROLIMUS [Suspect]
     Dosage: 25 MG, UNK
     Route: 041
     Dates: start: 20110427, end: 20110427
  2. DEPAS [Concomitant]
     Indication: RENAL CELL CARCINOMA
     Dosage: 0.5 MG, 1X/DAY
     Route: 048
  3. RABEPRAZOLE SODIUM [Concomitant]
     Indication: RENAL CELL CARCINOMA
     Dosage: 10 MG, 1X/DAY
  4. MAGMITT [Concomitant]
     Indication: RENAL CELL CARCINOMA
     Dosage: 330 MG, 2X/DAY
     Route: 048
  5. TEMSIROLIMUS [Suspect]
     Indication: METASTATIC RENAL CELL CARCINOMA
     Dosage: 25 MG, SINGLE
     Route: 041
     Dates: start: 20110420, end: 20110420
  6. EVIPROSTAT [Concomitant]
     Indication: RENAL CELL CARCINOMA
     Dosage: 1 DF, 3X/DAY
     Route: 048
  7. ASPIRIN [Concomitant]
     Indication: RENAL CELL CARCINOMA
     Dosage: 100 MG, 1X/DAY
     Route: 048
  8. GASTROM [Concomitant]
     Indication: RENAL CELL CARCINOMA
     Dosage: 1.5 G, 2X/DAY
     Route: 048
  9. TEMSIROLIMUS [Suspect]
     Dosage: 25 MG, UNK
     Dates: start: 20110510, end: 20110510
  10. TEMSIROLIMUS [Suspect]
     Dosage: 25 MG, UNK
     Dates: start: 20110517, end: 20110517
  11. POLARAMINE [Concomitant]
     Dosage: 5 MG, 1X/DAY
     Route: 048
     Dates: start: 20110420
  12. GASMOTIN [Concomitant]
     Indication: RENAL CELL CARCINOMA
     Dosage: 5 MG, 3X/DAY

REACTIONS (5)
  - INFUSION RELATED REACTION [None]
  - HOT FLUSH [None]
  - HYPERHIDROSIS [None]
  - NAUSEA [None]
  - FEELING ABNORMAL [None]
